FAERS Safety Report 9649427 (Version 1)
Quarter: 2013Q4

REPORT INFORMATION
  Report Type: Spontaneous
  Country: US (occurrence: None)
  Receive Date: 20131018
  Receipt Date: 20131018
  Transmission Date: 20140711
  Serious: No
  Sender: FDA-Public Use
  Company Number: AEGR000083

PATIENT
  Age: 59 Year
  Sex: Female
  Weight: 92.5 kg

DRUGS (15)
  1. JUXTAPID [Suspect]
     Indication: TYPE IIA HYPERLIPIDAEMIA
     Route: 048
     Dates: start: 20130619, end: 20130711
  2. ACTOPLUS MET (METFORMIN HYDROCHLORIDE, PIOGLITAZONE HYDROCHLORIDE) [Concomitant]
  3. AMBIEN(ZOLPIDEM TARTRATE) [Concomitant]
  4. ASPIRIN(ACETYLSALICYLIC ACID) [Concomitant]
  5. DIOVAN(VALSARTAN) [Concomitant]
  6. HYDROCHLOROTHIAZIDE(HYDROCHLOROTHIAZIDE) [Concomitant]
  7. MOBIC(MELOXICAM) [Concomitant]
  8. NEURONTIN(GABAPENTIN) [Concomitant]
  9. NORVASC(AMLODIPINE BESILATE) [Concomitant]
  10. PREDNISONE(PREDNISONE) [Concomitant]
  11. PROTONIX(PANTOPRAZOLE SODIUM SESQUIHYDRATE) [Concomitant]
  12. SYNTHROID(LEVOTHYROXINE SODIUM) [Concomitant]
  13. WELCHOL(COLESEVELAM HYDROCHLORIDE) [Concomitant]
  14. ZETIA(EZETIMIBE) [Concomitant]
  15. TOPROL(METOPROLOL SUCCINATE) [Concomitant]

REACTIONS (3)
  - Abdominal pain upper [None]
  - Gastrointestinal disorder [None]
  - Nausea [None]
